FAERS Safety Report 19216571 (Version 1)
Quarter: 2021Q2

REPORT INFORMATION
  Report Type: Spontaneous
  Country: US (occurrence: US)
  Receive Date: 20210504
  Receipt Date: 20210504
  Transmission Date: 20210717
  Serious: Yes (Hospitalization, Disabling)
  Sender: FDA-Public Use
  Company Number: None

PATIENT
  Age: 21 Year
  Sex: Female

DRUGS (7)
  1. BENZTROPINE. [Suspect]
     Active Substance: BENZTROPINE
  2. SERTRALINE [Suspect]
     Active Substance: SERTRALINE HYDROCHLORIDE
  3. ZYPREXA [Suspect]
     Active Substance: OLANZAPINE
  4. XANAX [Suspect]
     Active Substance: ALPRAZOLAM
  5. DEPAKOTE [Suspect]
     Active Substance: DIVALPROEX SODIUM
  6. PROZAC [Suspect]
     Active Substance: FLUOXETINE HYDROCHLORIDE
  7. ABILIFY [Suspect]
     Active Substance: ARIPIPRAZOLE

REACTIONS (9)
  - Tachyphrenia [None]
  - Dyskinesia [None]
  - Electric shock sensation [None]
  - Delusion [None]
  - Insomnia [None]
  - Abnormal behaviour [None]
  - Confusional state [None]
  - Hallucination [None]
  - Psychotic disorder [None]
